FAERS Safety Report 10161808 (Version 1)
Quarter: 2014Q2

REPORT INFORMATION
  Report Type: Spontaneous
  Country: KR (occurrence: KR)
  Receive Date: 20140509
  Receipt Date: 20140509
  Transmission Date: 20141212
  Serious: Yes (Other)
  Sender: FDA-Public Use
  Company Number: KR-ROCHE-1398728

PATIENT
  Sex: Female

DRUGS (1)
  1. MABTHERA [Suspect]
     Indication: ENCEPHALITIS AUTOIMMUNE
     Route: 042

REACTIONS (4)
  - Hypothermia [Unknown]
  - Dizziness [Unknown]
  - Chills [Unknown]
  - Off label use [Unknown]
